FAERS Safety Report 9631343 (Version 1)
Quarter: 2013Q4

REPORT INFORMATION
  Report Type: Spontaneous
  Country: FR (occurrence: None)
  Receive Date: 20131015
  Receipt Date: 20131015
  Transmission Date: 20140711
  Serious: Yes (Hospitalization)
  Sender: FDA-Public Use
  Company Number: DSM-2013-00932

PATIENT
  Age: 91 Year
  Sex: Female

DRUGS (1)
  1. ALTEIS DUO [Suspect]
     Indication: HYPERTENSION
     Dosage: (1 IN 1 D)
     Route: 048
     Dates: start: 2009, end: 20130822

REACTIONS (10)
  - Intestinal mucosal atrophy [None]
  - Diarrhoea [None]
  - Vomiting [None]
  - Abdominal pain [None]
  - Metabolic acidosis [None]
  - Hypokalaemia [None]
  - Hypoalbuminaemia [None]
  - Large intestine polyp [None]
  - Hiatus hernia [None]
  - Blood creatinine increased [None]
